FAERS Safety Report 17256073 (Version 1)
Quarter: 2020Q1

REPORT INFORMATION
  Report Type: Spontaneous
  Country: US (occurrence: US)
  Receive Date: 20200110
  Receipt Date: 20200110
  Transmission Date: 20200409
  Serious: No
  Sender: FDA-Public Use
  Company Number: US-ASTRAZENECA-2019SF81695

PATIENT
  Age: 775 Month
  Sex: Female
  Weight: .5 kg

DRUGS (8)
  1. DULERA [Concomitant]
     Active Substance: FORMOTEROL FUMARATE DIHYDRATE\MOMETASONE FUROATE
     Indication: MULTIPLE ALLERGIES
     Route: 065
  2. FASENRA [Suspect]
     Active Substance: BENRALIZUMAB
     Indication: HYPERSENSITIVITY
     Dosage: EVERY FOUR WEEKS
     Route: 058
     Dates: start: 201910
  3. PROAIR INHALER [Concomitant]
     Active Substance: ALBUTEROL SULFATE
     Route: 065
  4. DULERA [Concomitant]
     Active Substance: FORMOTEROL FUMARATE DIHYDRATE\MOMETASONE FUROATE
     Indication: ASTHMA
     Route: 065
  5. CORTISONE [Concomitant]
     Active Substance: CORTISONE
     Indication: CHEST DISCOMFORT
     Route: 065
     Dates: start: 20191203
  6. FASENRA [Suspect]
     Active Substance: BENRALIZUMAB
     Indication: ASTHMA
     Dosage: EVERY FOUR WEEKS
     Route: 058
     Dates: start: 201910
  7. ALLERGY SHOTS [Concomitant]
     Active Substance: UNSPECIFIED INGREDIENT
     Route: 065
  8. ALBUTEROL MACHINE [Concomitant]
     Indication: CHEST DISCOMFORT
     Route: 065

REACTIONS (11)
  - Dizziness [Recovering/Resolving]
  - Lung disorder [Unknown]
  - Chest discomfort [Unknown]
  - Drug ineffective [Not Recovered/Not Resolved]
  - Hypersensitivity [Unknown]
  - Dizziness [Recovered/Resolved]
  - Secretion discharge [Unknown]
  - Pneumonia [Recovered/Resolved]
  - Influenza [Recovered/Resolved]
  - Chest pain [Not Recovered/Not Resolved]
  - Nasopharyngitis [Recovered/Resolved]

NARRATIVE: CASE EVENT DATE: 201910
